FAERS Safety Report 5485250-8 (Version None)
Quarter: 2007Q4

REPORT INFORMATION
  Report Type: 
  Country: None (occurrence: None)
  Receive Date: 20071010
  Receipt Date: 20071010
  Transmission Date: 20080405
  Serious: Yes (Hospitalization)
  Sender: FDA-Public Use
  Company Number: None

PATIENT
  Age: 97 Year
  Sex: Female

DRUGS (18)
  1. NITROFURANTOIN [Suspect]
     Indication: ESCHERICHIA URINARY TRACT INFECTION
     Dosage: 100MG BID PO
     Route: 048
  2. NITROFURANTOIN [Suspect]
     Indication: ESCHERICHIA URINARY TRACT INFECTION
     Dosage: 50MG  TID  PO
     Route: 048
  3. FENTANYL [Concomitant]
  4. PERCOCET [Concomitant]
  5. TRAMADOL HCL [Concomitant]
  6. MORPHINE [Concomitant]
  7. PREDNISONE [Concomitant]
  8. ASPIRIN [Concomitant]
  9. ZOLOFT [Concomitant]
  10. LASIX [Concomitant]
  11. K-DUR 10 [Concomitant]
  12. COLACE [Concomitant]
  13. NEXIUM [Concomitant]
  14. LACTULOSE [Concomitant]
  15. DIOVAN [Concomitant]
  16. SENOKOT [Concomitant]
  17. OSCAL [Concomitant]
  18. NTP [Concomitant]

REACTIONS (5)
  - COMPRESSION FRACTURE [None]
  - CONFUSIONAL STATE [None]
  - DELIRIUM [None]
  - POST PROCEDURAL COMPLICATION [None]
  - PULMONARY FIBROSIS [None]
